FAERS Safety Report 10371085 (Version 1)
Quarter: 2014Q3

REPORT INFORMATION
  Report Type: Spontaneous
  Country: IT (occurrence: IT)
  Receive Date: 20140808
  Receipt Date: 20140808
  Transmission Date: 20150326
  Serious: Yes (Hospitalization)
  Sender: FDA-Public Use
  Company Number: IT-WATSON-2014-17023

PATIENT
  Age: 82 Year
  Sex: Female

DRUGS (5)
  1. NORMIX [Suspect]
     Active Substance: RIFAXIMIN
     Indication: INTENTIONAL SELF-INJURY
     Dosage: UNK
     Route: 048
     Dates: start: 20140616, end: 20140616
  2. TARDYFER [Suspect]
     Active Substance: FERROUS SULFATE\FERROUS SULFATE, DRIED
     Indication: INTENTIONAL SELF-INJURY
     Dosage: 800 MG, TOTAL
     Route: 048
     Dates: start: 20140616, end: 20140616
  3. SEACOR [Suspect]
     Active Substance: OMEGA-3 FATTY ACIDS
     Indication: INTENTIONAL SELF-INJURY
     Dosage: 10 DF, TOTAL
     Route: 048
     Dates: start: 20140616, end: 20140616
  4. VALSARTAN-HYDROCHLOROTHIAZIDE (UNKNOWN) [Suspect]
     Active Substance: HYDROCHLOROTHIAZIDE\VALSARTAN
     Indication: INTENTIONAL SELF-INJURY
     Dosage: 10 DF, TOTAL
     Route: 048
     Dates: start: 20140616, end: 20140616
  5. LASIX [Suspect]
     Active Substance: FUROSEMIDE
     Indication: INTENTIONAL SELF-INJURY
     Dosage: UNK
     Route: 048
     Dates: start: 20140616, end: 20140616

REACTIONS (4)
  - Intentional self-injury [Unknown]
  - Intentional overdose [Unknown]
  - Vomiting [Unknown]
  - Hypotension [Unknown]

NARRATIVE: CASE EVENT DATE: 20140616
